FAERS Safety Report 7146204-9 (Version None)
Quarter: 2010Q4

REPORT INFORMATION
  Report Type: 
  Country: None (occurrence: None)
  Receive Date: 20101208
  Receipt Date: 20101126
  Transmission Date: 20110411
  Serious: Yes (Death)
  Sender: FDA-Public Use
  Company Number: GXKR2010FR13470

PATIENT
  Sex: Female

DRUGS (14)
  1. RIFAMPICIN [Suspect]
     Indication: ENDOCARDITIS STAPHYLOCOCCAL
     Dosage: 900 MG, BID (THREE CAPSULE IN THE MORNING AND EVENING)
     Route: 048
     Dates: start: 20101029, end: 20101105
  2. VANCOMYCIN [Suspect]
     Indication: ENDOCARDITIS STAPHYLOCOCCAL
     Dosage: 1 G, UNK
     Route: 042
     Dates: start: 20101027, end: 20101027
  3. VANCOMYCIN [Suspect]
     Dosage: 2.5 G, UNK
     Route: 042
     Dates: start: 20101028, end: 20101028
  4. VANCOMYCIN [Suspect]
     Dosage: 3 G, UNK
     Route: 042
     Dates: start: 20101029, end: 20101030
  5. VANCOMYCIN [Suspect]
     Dosage: 2.5 G, UNK
     Route: 042
     Dates: start: 20101031
  6. GENTAMICIN [Concomitant]
     Indication: ENDOCARDITIS STAPHYLOCOCCAL
     Dosage: 250 MG, UNK
     Route: 042
     Dates: start: 20101027, end: 20101031
  7. TRAMADOL [Concomitant]
     Dosage: 10 MG IN MORNING AND THE EVENING
     Route: 065
     Dates: start: 20101029, end: 20101105
  8. PREVISCAN [Concomitant]
  9. LASIX [Concomitant]
     Dosage: 1 SCORED TABLET IN THE MORNING AND 1 SCORED TABLET AT LUNCH)
     Route: 065
  10. TAHOR [Concomitant]
     Dosage: 40 MG PER DAY
     Route: 065
  11. CORDARONE [Concomitant]
     Dosage: 1 DF/DAY
     Route: 065
  12. AZANTAC [Concomitant]
     Dosage: 300 MG/DAY
     Route: 065
  13. BUDESONIDE W/FORMOTEROL FUMARATE [Concomitant]
     Dosage: 2 PUFFS/DAY
     Route: 065
  14. HYDROXYZINE HCL [Concomitant]

REACTIONS (2)
  - RENAL FAILURE ACUTE [None]
  - RENAL TUBULAR NECROSIS [None]
